FAERS Safety Report 5726848-9 (Version None)
Quarter: 2008Q2

REPORT INFORMATION
  Report Type: 
  Country: None (occurrence: None)
  Receive Date: 20080502
  Receipt Date: 20080424
  Transmission Date: 20081010
  Serious: Yes (Life-Threatening)
  Sender: FDA-Public Use
  Company Number: KW-PFIZER INC-2008036021

PATIENT
  Age: 12 Year
  Sex: Male

DRUGS (2)
  1. SOLU-CORTEF [Suspect]
     Indication: LOWER RESPIRATORY TRACT INFECTION
     Route: 042
     Dates: start: 20080407, end: 20080407
  2. CEFTRIAXONE [Concomitant]
     Route: 042
     Dates: start: 20080406, end: 20080407

REACTIONS (2)
  - ANGIOEDEMA [None]
  - LARYNGOSPASM [None]
